FAERS Safety Report 7360620-1 (Version None)
Quarter: 2011Q1

REPORT INFORMATION
  Report Type: 
  Country: None (occurrence: None)
  Receive Date: 20110318
  Receipt Date: 20100928
  Transmission Date: 20110831
  Serious: Yes (Other)
  Sender: FDA-Public Use
  Company Number: US-BAYER-201034788NA

PATIENT
  Sex: Female
  Weight: 81.179 kg

DRUGS (1)
  1. YASMIN [Suspect]
     Dosage: UNK
     Dates: start: 20030101

REACTIONS (2)
  - CHOLECYSTECTOMY [None]
  - HAEMORRHAGE [None]
